FAERS Safety Report 9374020 (Version 2)
Quarter: 2014Q3

REPORT INFORMATION
  Report Type: Spontaneous
  Country: CY (occurrence: CY)
  Receive Date: 20130628
  Receipt Date: 20140926
  Transmission Date: 20150326
  Serious: Yes (Other)
  Sender: FDA-Public Use
  Company Number: CY-RANBAXY-2013R1-70717

PATIENT
  Age: 24 Year
  Sex: Female

DRUGS (2)
  1. ZOLPIDEM [Interacting]
     Active Substance: ZOLPIDEM\ZOLPIDEM TARTRATE
     Indication: INSOMNIA
     Dosage: 10 MG, QD (AT BEDTIME)
     Route: 065
  2. PAROXETINE [Suspect]
     Active Substance: PAROXETINE\PAROXETINE HYDROCHLORIDE
     Indication: PANIC DISORDER
     Dosage: 30 MG, DAILY
     Route: 048

REACTIONS (3)
  - Panic attack [Recovering/Resolving]
  - Illusion [Recovering/Resolving]
  - Drug interaction [Unknown]
